FAERS Safety Report 8920196 (Version 4)
Quarter: 2013Q1

REPORT INFORMATION
  Report Type: Report from Study
  Country: US (occurrence: US)
  Receive Date: 20121122
  Receipt Date: 20130308
  Transmission Date: 20140127
  Serious: Yes (Life-Threatening, Hospitalization, Other)
  Sender: FDA-Public Use
  Company Number: US-ROCHE-1158953

PATIENT
  Age: 65 Year
  Sex: Female
  Weight: 108.96 kg

DRUGS (11)
  1. XOLAIR [Suspect]
     Indication: ASTHMA
     Route: 058
     Dates: start: 20120808, end: 20121015
  2. XOLAIR [Suspect]
     Route: 058
     Dates: start: 20121015, end: 20121015
  3. ADVAIR DISKUS [Concomitant]
     Indication: ASTHMA
     Route: 055
  4. ADVAIR DISKUS [Concomitant]
     Dosage: 500/50
     Route: 055
     Dates: start: 2010
  5. ASMANEX [Concomitant]
     Indication: ASTHMA
     Dosage: 2 PUFFS OF 220 MCG
     Route: 055
     Dates: start: 20120808
  6. ALBUTEROL [Concomitant]
     Indication: ASTHMA
     Route: 065
  7. ATROVENT HFA [Concomitant]
     Indication: ASTHMA
     Route: 055
     Dates: start: 20120803
  8. VITAMIN B12 [Concomitant]
     Indication: VITAMIN B12 DEFICIENCY
     Route: 030
  9. DIOVAN HCT [Concomitant]
     Indication: HYPERTENSION
     Dosage: 20-25 MG A DAY
     Route: 048
     Dates: start: 20120808
  10. ESCITALOPRAM [Concomitant]
     Indication: DEPRESSION
     Route: 048
  11. VERAPAMIL [Concomitant]
     Indication: HYPERTENSION
     Route: 048
     Dates: start: 20120308

REACTIONS (4)
  - Anaphylactic reaction [Recovered/Resolved]
  - Dizziness [Recovered/Resolved]
  - Blood pressure decreased [Recovered/Resolved]
  - Urticaria [Unknown]
